FAERS Safety Report 18050950 (Version 1)
Quarter: 2020Q3

REPORT INFORMATION
  Report Type: Spontaneous
  Country: US (occurrence: US)
  Receive Date: 20200721
  Receipt Date: 20200721
  Transmission Date: 20201103
  Serious: Yes (Hospitalization, Other)
  Sender: FDA-Public Use
  Company Number: US-ALLERGAN-2027133US

PATIENT
  Sex: Male

DRUGS (4)
  1. SODIUM CHLORIDE. [Concomitant]
     Active Substance: SODIUM CHLORIDE
     Indication: CORNEAL DEGENERATION
     Dosage: UNK, Q4HR
     Route: 047
  2. TRIAMCINOLON                       /00031901/ [Suspect]
     Active Substance: TRIAMCINOLONE
     Indication: PRODUCT USED FOR UNKNOWN INDICATION
  3. PREDNISOLONE UNK [Suspect]
     Active Substance: PREDNISOLONE
     Indication: CORNEAL DEGENERATION
     Dosage: UNK UNK, QID
     Route: 047
  4. DEX UNK [Suspect]
     Active Substance: UNSPECIFIED INGREDIENT
     Indication: PRODUCT USED FOR UNKNOWN INDICATION
     Route: 057

REACTIONS (2)
  - Cytomegalovirus chorioretinitis [Recovered/Resolved]
  - Rhegmatogenous retinal detachment [Recovering/Resolving]
